FAERS Safety Report 10015811 (Version 6)
Quarter: 2016Q2

REPORT INFORMATION
  Report Type: Report from Study
  Country: US (occurrence: US)
  Receive Date: 20140317
  Receipt Date: 20160415
  Transmission Date: 20160815
  Serious: Yes (Other)
  Sender: FDA-Public Use
  Company Number: US-GLAXOSMITHKLINE-A1064356A

PATIENT
  Age: 68 Year
  Sex: Male

DRUGS (6)
  1. PAZOPANIB [Suspect]
     Active Substance: PAZOPANIB
     Indication: RENAL NEOPLASM
     Dosage: 800 MG, QD
     Route: 048
     Dates: start: 20140110, end: 20140217
  2. FISH OIL [Concomitant]
     Active Substance: FISH OIL
     Indication: PRODUCT USED FOR UNKNOWN INDICATION
     Route: 065
  3. VITAMIN B [Concomitant]
     Active Substance: VITAMIN B
     Indication: PRODUCT USED FOR UNKNOWN INDICATION
     Route: 065
  4. PAZOPANIB [Suspect]
     Active Substance: PAZOPANIB
     Dosage: 200 MG, U
  5. PAZOPANIB [Suspect]
     Active Substance: PAZOPANIB
     Dosage: 200 MG, U
     Dates: start: 201503
  6. PAZOPANIB [Suspect]
     Active Substance: PAZOPANIB
     Dosage: 200 MG, U
     Dates: start: 20140224

REACTIONS (1)
  - Eye haemorrhage [Recovering/Resolving]

NARRATIVE: CASE EVENT DATE: 20140212
